FAERS Safety Report 5948010-7 (Version None)
Quarter: 2008Q4

REPORT INFORMATION
  Report Type: 
  Country: None (occurrence: None)
  Receive Date: 20081110
  Receipt Date: 20081110
  Transmission Date: 20090506
  Serious: Yes (Hospitalization)
  Sender: FDA-Public Use
  Company Number: None

PATIENT
  Age: 83 Year
  Sex: Male
  Weight: 68.6 kg

DRUGS (2)
  1. METHOCARBAMOL [Suspect]
     Indication: MUSCLE RELAXANT THERAPY
     Dosage: 1000 MG QID PO
     Route: 048
     Dates: start: 20031007, end: 20081030
  2. TRAMADOL HCL [Suspect]
     Indication: PAIN
     Dosage: 25 MG TID PO
     Route: 048
     Dates: start: 20041202, end: 20081030

REACTIONS (1)
  - SYNCOPE [None]
